FAERS Safety Report 5473033-4 (Version None)
Quarter: 2007Q4

REPORT INFORMATION
  Report Type: 
  Country: None (occurrence: None)
  Receive Date: 20071001
  Receipt Date: 20070209
  Transmission Date: 20080405
  Serious: No
  Sender: FDA-Public Use
  Company Number: US-ASTRAZENECA-2007UW02700

PATIENT
  Age: 48 Year
  Sex: Female
  Weight: 65.8 kg

DRUGS (7)
  1. ARIMIDEX [Suspect]
     Indication: BREAST CANCER
     Route: 048
  2. ARIMIDEX [Suspect]
     Indication: MASTECTOMY
     Route: 048
  3. ARIMIDEX [Suspect]
     Indication: CHEMOTHERAPY
     Route: 048
  4. ATENOLOL [Concomitant]
  5. TRAMADOL HCL [Concomitant]
  6. PRILOSEC [Concomitant]
  7. LORATEDINE [Concomitant]

REACTIONS (3)
  - ARTHRALGIA [None]
  - HOT FLUSH [None]
  - HYPERKALAEMIA [None]
